FAERS Safety Report 7293092-6 (Version None)
Quarter: 2011Q1

REPORT INFORMATION
  Report Type: 
  Country: None (occurrence: None)
  Receive Date: 20110215
  Receipt Date: 20110125
  Transmission Date: 20110831
  Serious: Yes (Other)
  Sender: FDA-Public Use
  Company Number: US-BAYER-201021645BCC

PATIENT
  Sex: Female
  Weight: 58.957 kg

DRUGS (2)
  1. ALEVE [Suspect]
     Indication: NECK PAIN
     Route: 048
     Dates: start: 20101009
  2. ALEVE [Suspect]
     Indication: HEADACHE
     Route: 048
     Dates: start: 20101008, end: 20101008

REACTIONS (9)
  - OROPHARYNGEAL PAIN [None]
  - PHARYNGEAL OEDEMA [None]
  - DYSPNOEA [None]
  - RASH PAPULAR [None]
  - HYPERSENSITIVITY [None]
  - COUGH [None]
  - PRURITUS [None]
  - CHEST PAIN [None]
  - OEDEMA PERIPHERAL [None]
